FAERS Safety Report 20374549 (Version 2)
Quarter: 2022Q1

REPORT INFORMATION
  Report Type: Spontaneous
  Country: IT (occurrence: IT)
  Receive Date: 20220125
  Receipt Date: 20220311
  Transmission Date: 20220423
  Serious: Yes (Hospitalization, Other)
  Sender: FDA-Public Use
  Company Number: IT-002147023-NVSC2022IT004259

PATIENT
  Age: 52 Year
  Sex: Male

DRUGS (1)
  1. TADALAFIL [Suspect]
     Active Substance: TADALAFIL
     Indication: Erectile dysfunction
     Dosage: 20 MG, AS NEEDED (IN THE PREVIOUS NIGHT)
     Route: 048

REACTIONS (2)
  - Acute macular neuroretinopathy [Recovering/Resolving]
  - Hypotension [Unknown]
